FAERS Safety Report 6805612-3 (Version None)
Quarter: 2010Q2

REPORT INFORMATION
  Report Type: 
  Country: None (occurrence: None)
  Receive Date: 20100628
  Receipt Date: 20080409
  Transmission Date: 20101027
  Serious: Yes (Disabling)
  Sender: FDA-Public Use
  Company Number: US-PFIZER INC-2008012009

PATIENT
  Sex: Female
  Weight: 54.4 kg

DRUGS (5)
  1. GEODON [Suspect]
     Indication: MAJOR DEPRESSION
     Route: 048
     Dates: start: 20031201
  2. EFFEXOR XR [Concomitant]
  3. LORAZEPAM [Concomitant]
  4. LITHIUM CARBONATE [Concomitant]
  5. RISPERDAL [Concomitant]

REACTIONS (9)
  - BRUXISM [None]
  - DECREASED APPETITE [None]
  - GINGIVAL PAIN [None]
  - MOVEMENT DISORDER [None]
  - NEURALGIA [None]
  - ORAL PAIN [None]
  - TOOTHACHE [None]
  - TRISMUS [None]
  - WEIGHT DECREASED [None]
